FAERS Safety Report 9926483 (Version 2)
Quarter: 2014Q1

REPORT INFORMATION
  Report Type: Spontaneous
  Country: US (occurrence: US)
  Receive Date: 20140226
  Receipt Date: 20140226
  Transmission Date: 20141002
  Serious: No
  Sender: FDA-Public Use
  Company Number: US-AMGEN-USASP2013066816

PATIENT
  Age: 56 Year
  Sex: Female
  Weight: 101.59 kg

DRUGS (1)
  1. ENBREL [Suspect]
     Indication: RHEUMATOID ARTHRITIS
     Dosage: 50 MG, ONCE WEEKLY
     Route: 058
     Dates: start: 20130113

REACTIONS (3)
  - Fatigue [Not Recovered/Not Resolved]
  - Irritability [Recovered/Resolved]
  - Injection site reaction [Recovered/Resolved]
